FAERS Safety Report 14374693 (Version 14)
Quarter: 2023Q2

REPORT INFORMATION
  Report Type: Other
  Country: CA (occurrence: None)
  Receive Date: 20180111
  Receipt Date: 20230615
  Transmission Date: 20230721
  Serious: Yes (Other)
  Sender: FDA-Public Use
  Company Number: CA-ROCHE-1365965

PATIENT
  Age: 65 Year
  Sex: Female
  Weight: 55 kg

DRUGS (6)
  1. ACTEMRA [Suspect]
     Active Substance: TOCILIZUMAB
     Indication: Rheumatoid arthritis
     Route: 042
     Dates: start: 20140219
  2. ACTEMRA [Suspect]
     Active Substance: TOCILIZUMAB
     Route: 042
     Dates: start: 20230406, end: 20230406
  3. ACTEMRA [Suspect]
     Active Substance: TOCILIZUMAB
     Route: 042
     Dates: start: 20230503
  4. ACTONEL [Suspect]
     Active Substance: RISEDRONATE SODIUM
     Indication: Product used for unknown indication
     Route: 065
     Dates: end: 2015
  5. ATACAND [Concomitant]
     Active Substance: CANDESARTAN CILEXETIL
  6. OMEGA 3 [Concomitant]
     Active Substance: CAPSAICIN

REACTIONS (22)
  - Abdominal pain [Not Recovered/Not Resolved]
  - Diarrhoea [Not Recovered/Not Resolved]
  - Blood pressure increased [Unknown]
  - Oropharyngeal pain [Unknown]
  - Nasopharyngitis [Not Recovered/Not Resolved]
  - Oral herpes [Not Recovered/Not Resolved]
  - Urticaria [Unknown]
  - Infusion related reaction [Unknown]
  - Illness [Unknown]
  - Blood pressure increased [Unknown]
  - Cough [Not Recovered/Not Resolved]
  - Laryngitis [Unknown]
  - Fungal infection [Not Recovered/Not Resolved]
  - Stomatitis [Not Recovered/Not Resolved]
  - Ocular hyperaemia [Unknown]
  - Weight decreased [Not Recovered/Not Resolved]
  - Malaise [Not Recovered/Not Resolved]
  - Productive cough [Unknown]
  - Sputum discoloured [Unknown]
  - Off label use [Unknown]
  - Product use issue [Unknown]
  - Weight increased [Unknown]

NARRATIVE: CASE EVENT DATE: 20140301
